FAERS Safety Report 7622168-6 (Version None)
Quarter: 2011Q3

REPORT INFORMATION
  Report Type: 
  Country: None (occurrence: None)
  Receive Date: 20110720
  Receipt Date: 20110503
  Transmission Date: 20111222
  Serious: Yes (Hospitalization)
  Sender: FDA-Public Use
  Company Number: US-BAYER-2011-022067

PATIENT
  Age: 43 Year
  Sex: Female
  Weight: 83.9 kg

DRUGS (14)
  1. ALBUTEROL SULFATE AUTOHALER [Concomitant]
     Dosage: UNK
     Route: 055
     Dates: start: 20091201
  2. LUNESTA [Concomitant]
     Dosage: 3 MG, PRN
     Route: 048
  3. CLINDESSE [Concomitant]
     Route: 067
  4. TRIAZOLAM [Concomitant]
     Dosage: 0.25 MG, UNK
     Route: 048
  5. CELEXA [Concomitant]
  6. BUPROPION HYDROCHLORIDE [Concomitant]
     Dosage: 150 MG, UNK
     Route: 048
     Dates: start: 20050101, end: 20090101
  7. YAZ [Suspect]
     Indication: PRODUCT USED FOR UNKNOWN INDICATION
     Dosage: UNK
     Dates: start: 20070801, end: 20100101
  8. CELEBREX [Concomitant]
     Dosage: 200 MG, BID
     Route: 048
  9. WELLBUTRIN [Concomitant]
     Dosage: DAILY DOSE 150 MG
     Route: 048
  10. PERCOCET [Concomitant]
  11. CITALOPRAM HYDROBROMIDE [Concomitant]
     Dosage: 20 MG, QD
     Route: 048
  12. MULTI-VITAMIN [Concomitant]
     Indication: MEDICAL DIET
     Route: 048
  13. PRILOSEC [Concomitant]
  14. COLACE [Concomitant]

REACTIONS (4)
  - CHOLESTEROSIS [None]
  - CHOLECYSTITIS CHRONIC [None]
  - ABDOMINAL PAIN UPPER [None]
  - CHOLELITHIASIS [None]
